FAERS Safety Report 5767540-4 (Version None)
Quarter: 2008Q2

REPORT INFORMATION
  Report Type: 
  Country: None (occurrence: None)
  Receive Date: 20080612
  Receipt Date: 20080605
  Transmission Date: 20081010
  Serious: Yes (Death)
  Sender: FDA-Public Use
  Company Number: JP-JNJFOC-20080601809

PATIENT
  Sex: Female
  Weight: 60 kg

DRUGS (28)
  1. ITRIZOLE [Suspect]
     Route: 041
  2. ITRIZOLE [Suspect]
     Indication: FEBRILE NEUTROPENIA
     Route: 041
  3. ITRIZOLE [Suspect]
     Route: 048
  4. ITRIZOLE [Suspect]
     Route: 048
  5. ITRIZOLE [Suspect]
     Route: 048
  6. ALKERAN [Suspect]
     Indication: DRUG USE FOR UNKNOWN INDICATION
     Route: 048
  7. MAXIPIME [Concomitant]
     Route: 042
  8. MAXIPIME [Concomitant]
     Route: 042
  9. MAXIPIME [Concomitant]
     Route: 042
  10. AMINOFLUID [Concomitant]
     Indication: PROPHYLAXIS
     Route: 042
  11. GRAN [Concomitant]
     Route: 042
  12. GRAN [Concomitant]
     Route: 042
  13. GRAN [Concomitant]
     Route: 042
  14. GRAN [Concomitant]
     Route: 042
  15. GRAN [Concomitant]
     Route: 042
  16. GRAN [Concomitant]
     Indication: ACUTE MYELOID LEUKAEMIA
     Route: 042
  17. SULPERAZON [Concomitant]
     Route: 042
  18. MODACIN [Concomitant]
     Route: 042
  19. MODACIN [Concomitant]
     Route: 042
  20. AMIKAMYCIN [Concomitant]
     Route: 042
  21. AMIKAMYCIN [Concomitant]
     Route: 042
  22. LEVOTHYROXINE SODIUM [Concomitant]
     Route: 048
  23. GLYSENNID [Concomitant]
     Indication: PROPHYLAXIS
     Route: 048
  24. CALONAL [Concomitant]
     Route: 048
  25. CYTARABINE [Concomitant]
     Indication: ACUTE MYELOID LEUKAEMIA
     Route: 048
  26. FENTANYL TRANSDERMAL SYSTEM [Concomitant]
     Indication: ACUTE MYELOID LEUKAEMIA
     Route: 062
  27. MAGLAX [Concomitant]
     Indication: PROPHYLAXIS
     Route: 048
  28. BIOFERMIN R [Concomitant]
     Indication: PROPHYLAXIS
     Route: 048

REACTIONS (4)
  - ACUTE MYELOID LEUKAEMIA [None]
  - BLOOD LACTATE DEHYDROGENASE INCREASED [None]
  - NEUTROPENIA [None]
  - WHITE BLOOD CELL COUNT INCREASED [None]
